FAERS Safety Report 6565086-7 (Version None)
Quarter: 2010Q1

REPORT INFORMATION
  Report Type: 
  Country: None (occurrence: None)
  Receive Date: 20100201
  Receipt Date: 20100126
  Transmission Date: 20100710
  Serious: Yes (Hospitalization, Other)
  Sender: FDA-Public Use
  Company Number: ES-MERCK-0911ESP00035

PATIENT
  Age: 27 Year
  Sex: Male

DRUGS (6)
  1. SINGULAIR [Suspect]
     Indication: ASTHMA
     Route: 048
     Dates: start: 20090301, end: 20091115
  2. SINGULAIR [Suspect]
     Route: 048
     Dates: start: 20091125
  3. SINGULAIR [Suspect]
     Indication: EAGLE BARRETT SYNDROME
     Route: 048
     Dates: start: 20090301, end: 20091115
  4. SINGULAIR [Suspect]
     Route: 048
     Dates: start: 20091125
  5. BUDESONIDE AND FORMOTEROL FUMARATE [Concomitant]
     Indication: ASTHMA
     Route: 055
  6. BUDESONIDE AND FORMOTEROL FUMARATE [Concomitant]
     Indication: EAGLE BARRETT SYNDROME
     Route: 055

REACTIONS (3)
  - BRONCHOSPASM [None]
  - ERYTHEMA [None]
  - LUNG INFILTRATION [None]
